FAERS Safety Report 6421715-X (Version None)
Quarter: 2009Q4

REPORT INFORMATION
  Report Type: 
  Country: None (occurrence: None)
  Receive Date: 20091030
  Receipt Date: 20091026
  Transmission Date: 20100525
  Serious: Yes (Other)
  Sender: FDA-Public Use
  Company Number: US-ELI_LILLY_AND_COMPANY-US200910006402

PATIENT
  Sex: Male

DRUGS (2)
  1. HUMALOG MIX 75/25 [Suspect]
     Indication: TYPE 1 DIABETES MELLITUS
     Dosage: 36 U, 2/D
  2. HUMALOG MIX 75/25 [Suspect]
     Dosage: 36 U, 2/D

REACTIONS (4)
  - BLINDNESS [None]
  - DEVICE MISUSE [None]
  - VASCULAR GRAFT [None]
  - VISUAL ACUITY REDUCED [None]
